FAERS Safety Report 4598494-4 (Version None)
Quarter: 2005Q2

REPORT INFORMATION
  Report Type: 
  Country: None (occurrence: None)
  Receive Date: 20050204
  Receipt Date: 20041129
  Transmission Date: 20051028
  Serious: Yes (Death)
  Sender: FDA-Public Use
  Company Number: PHEH2004US01024

PATIENT
  Age: 35 Year
  Sex: Male

DRUGS (5)
  1. CLOZARIL [Suspect]
     Indication: SCHIZOPHRENIA
     Dosage: 300 MG, QD, ORAL
     Route: 048
     Dates: start: 19950101
  2. ABILIFY [Concomitant]
  3. NEURONTIN [Concomitant]
  4. LEXAPRO [Concomitant]
  5. PROLIXIN [Concomitant]

REACTIONS (2)
  - MUSCLE DISORDER [None]
  - OVERDOSE [None]
